FAERS Safety Report 8959986 (Version 1)
Quarter: 2012Q4

REPORT INFORMATION
  Report Type: Report from Study
  Country: CA (occurrence: CA)
  Receive Date: 20121212
  Receipt Date: 20121212
  Transmission Date: 20130627
  Serious: Yes (Hospitalization)
  Sender: FDA-Public Use
  Company Number: CA-JNJFOC-20121202266

PATIENT
  Age: 73 Year
  Sex: Female
  Weight: 51.2 kg

DRUGS (3)
  1. REMICADE [Suspect]
     Indication: COLITIS ULCERATIVE
     Route: 042
     Dates: start: 20121024
  2. PREDNISONE [Concomitant]
     Route: 048
  3. HYDROCORTISONE [Concomitant]
     Route: 065

REACTIONS (1)
  - Syncope [Unknown]
